FAERS Safety Report 20094549 (Version 1)
Quarter: 2021Q4

REPORT INFORMATION
  Report Type: Spontaneous
  Country: US (occurrence: US)
  Receive Date: 20211122
  Receipt Date: 20211122
  Transmission Date: 20220303
  Serious: No
  Sender: FDA-Public Use
  Company Number: US-JNJFOC-20211135567

PATIENT
  Sex: Female

DRUGS (3)
  1. ZYRTEC-D [Suspect]
     Active Substance: CETIRIZINE HYDROCHLORIDE\PSEUDOEPHEDRINE HYDROCHLORIDE
     Indication: Multiple allergies
     Dosage: 2 TABLETS; STARTED 2 OR 3 WEEKS AGO
     Route: 065
     Dates: start: 2021
  2. ZYRTEC-D [Suspect]
     Active Substance: CETIRIZINE HYDROCHLORIDE\PSEUDOEPHEDRINE HYDROCHLORIDE
     Indication: Mite allergy
  3. ZYRTEC-D [Suspect]
     Active Substance: CETIRIZINE HYDROCHLORIDE\PSEUDOEPHEDRINE HYDROCHLORIDE
     Indication: Cough

REACTIONS (2)
  - Product use in unapproved indication [Unknown]
  - Accidental overdose [Unknown]

NARRATIVE: CASE EVENT DATE: 20210101
